FAERS Safety Report 23727029 (Version 2)
Quarter: 2025Q2

REPORT INFORMATION
  Report Type: Report from Study
  Country: US (occurrence: US)
  Receive Date: 20240410
  Receipt Date: 20250422
  Transmission Date: 20250717
  Serious: No
  Sender: SANOFI AVENTIS
  Company Number: US-SA-SAC20240405000912

PATIENT
  Age: 20 Year
  Sex: Male
  Weight: 81.6 kg

DRUGS (2)
  1. EFTRENONACOG ALFA [Suspect]
     Active Substance: EFTRENONACOG ALFA
     Indication: Factor IX deficiency
     Route: 042
     Dates: start: 202301
  2. EFTRENONACOG ALFA [Suspect]
     Active Substance: EFTRENONACOG ALFA
     Indication: Factor IX deficiency
     Route: 042
     Dates: start: 202301

REACTIONS (5)
  - Weight decreased [Unknown]
  - Haemorrhage [Recovered/Resolved]
  - Contusion [Recovered/Resolved]
  - Muscle strain [Recovered/Resolved]
  - Haemorrhage [Recovering/Resolving]

NARRATIVE: CASE EVENT DATE: 20240101
